FAERS Safety Report 5415354-7 (Version None)
Quarter: 2007Q3

REPORT INFORMATION
  Report Type: 
  Country: None (occurrence: None)
  Receive Date: 20070815
  Receipt Date: 20070806
  Transmission Date: 20080115
  Serious: Yes (Other)
  Sender: FDA-Public Use
  Company Number: JP-AVENTIS-200712121JP

PATIENT

DRUGS (3)
  1. TAXOTERE [Suspect]
  2. CISPLATIN [Concomitant]
  3. FLUOROURACIL [Concomitant]
     Dosage: DOSE: 800 MG/M2/DAY, 5 DAYS/4 WEEKS

REACTIONS (2)
  - ALTERED STATE OF CONSCIOUSNESS [None]
  - HYPONATRAEMIA [None]
